FAERS Safety Report 7373720-7 (Version None)
Quarter: 2011Q1

REPORT INFORMATION
  Report Type: 
  Country: None (occurrence: None)
  Receive Date: 20110325
  Receipt Date: 20100719
  Transmission Date: 20110831
  Serious: No
  Sender: FDA-Public Use
  Company Number: US-MYLANLABS-2010S1012947

PATIENT
  Age: 29 Year
  Sex: Female

DRUGS (2)
  1. EXCEDRIN (MIGRAINE) [Concomitant]
     Indication: HEADACHE
  2. PROPRANOLOL [Suspect]
     Indication: MIGRAINE
     Route: 048
     Dates: start: 20100602

REACTIONS (1)
  - OLIGOMENORRHOEA [None]
